FAERS Safety Report 9861981 (Version 2)
Quarter: 2014Q2

REPORT INFORMATION
  Report Type: Spontaneous
  Country: US (occurrence: US)
  Receive Date: 20140203
  Receipt Date: 20140415
  Transmission Date: 20141212
  Serious: Yes (Other)
  Sender: FDA-Public Use
  Company Number: US-ELI_LILLY_AND_COMPANY-US201401008806

PATIENT
  Sex: Male

DRUGS (6)
  1. CYMBALTA [Suspect]
     Indication: DEPRESSION
     Dosage: 60 MG, QD
     Route: 065
     Dates: start: 20110614
  2. CYMBALTA [Suspect]
     Indication: POST-TRAUMATIC STRESS DISORDER
     Dosage: 90 MG, QD
     Route: 065
     Dates: start: 2012, end: 201401
  3. CYMBALTA [Suspect]
     Indication: BRAIN INJURY
     Dosage: 60 MG, QD
     Route: 065
     Dates: start: 20140119
  4. CYMBALTA [Suspect]
     Dosage: 30 MG, QD
     Route: 065
  5. CYMBALTA [Suspect]
     Dosage: 20 MG, QD
     Route: 065
  6. CYMBALTA [Suspect]
     Dosage: 15 MG, QD
     Route: 065

REACTIONS (31)
  - Suicidal ideation [Unknown]
  - Rash [Recovering/Resolving]
  - Serotonin syndrome [Unknown]
  - Glaucoma [Unknown]
  - Yellow skin [Unknown]
  - Balance disorder [Unknown]
  - Hypopnoea [Unknown]
  - Dyspnoea [Unknown]
  - Skin infection [Not Recovered/Not Resolved]
  - Hypervigilance [Unknown]
  - Aphasia [Unknown]
  - Retching [Unknown]
  - Photophobia [Unknown]
  - Hallucination, visual [Unknown]
  - Neck pain [Unknown]
  - Fatigue [Unknown]
  - Dizziness [Unknown]
  - Nausea [Unknown]
  - Sluggishness [Unknown]
  - Hypoaesthesia [Unknown]
  - Confusional state [Unknown]
  - Decreased appetite [Unknown]
  - Headache [Unknown]
  - Constipation [Unknown]
  - Pruritus [Unknown]
  - Visual impairment [Unknown]
  - Dry mouth [Unknown]
  - Abdominal pain [Unknown]
  - Vomiting [Unknown]
  - Fall [Unknown]
  - Aggression [Unknown]
